FAERS Safety Report 16937237 (Version 2)
Quarter: 2020Q1

REPORT INFORMATION
  Report Type: Report from Study
  Country: NL (occurrence: NL)
  Receive Date: 20191018
  Receipt Date: 20200110
  Transmission Date: 20200409
  Serious: No
  Sender: FDA-Public Use
  Company Number: NL-TOLMAR, INC.-19NL000360

PATIENT
  Sex: Male

DRUGS (1)
  1. ELIGARD [Suspect]
     Active Substance: LEUPROLIDE ACETATE
     Indication: PROSTATE CANCER
     Dosage: 45 MG, EVERY 26 WEEKS
     Route: 058
     Dates: start: 20190522

REACTIONS (3)
  - Blood testosterone increased [Unknown]
  - Prostatic specific antigen increased [Unknown]
  - Therapeutic product effect incomplete [Unknown]
